FAERS Safety Report 11862182 (Version 1)
Quarter: 2015Q4

REPORT INFORMATION
  Report Type: Spontaneous
  Country: US (occurrence: US)
  Receive Date: 20151222
  Receipt Date: 20151222
  Transmission Date: 20160305
  Serious: No
  Sender: FDA-Public Use
  Company Number: US-ELI_LILLY_AND_COMPANY-US201512004099

PATIENT
  Sex: Female

DRUGS (1)
  1. STRATTERA [Suspect]
     Active Substance: ATOMOXETINE HYDROCHLORIDE
     Indication: ATTENTION DEFICIT/HYPERACTIVITY DISORDER
     Dosage: 25 MG, QD
     Route: 048
     Dates: start: 20151207

REACTIONS (10)
  - Feeling of body temperature change [Unknown]
  - Headache [Unknown]
  - Hot flush [Unknown]
  - Insomnia [Unknown]
  - Menopausal symptoms [Unknown]
  - Sleep disorder [Unknown]
  - Diarrhoea [Unknown]
  - Palpitations [Unknown]
  - Terminal insomnia [Unknown]
  - Dry mouth [Unknown]

NARRATIVE: CASE EVENT DATE: 20151207
